FAERS Safety Report 8106600 (Version 3)
Quarter: 2012Q4

REPORT INFORMATION
  Report Type: 
  Country: US (occurrence: US)
  Receive Date: 20110825
  Receipt Date: 20121130
  Transmission Date: 20130627
  Serious: Yes (Hospitalization)
  Sender: FDA-Public Use
  Company Number: US-GLAXOSMITHKLINE-A0925552A

PATIENT
  Age: 55 Year
  Sex: Male
  Weight: 72.3 kg

DRUGS (4)
  1. AVANDIA [Suspect]
     Indication: DIABETES MELLITUS
     Dosage: 4MG Per day
     Route: 048
     Dates: start: 200309, end: 200601
  2. GLIMEPIRIDE [Concomitant]
  3. VIAGRA [Concomitant]
  4. LIPITOR [Concomitant]

REACTIONS (7)
  - Myocardial infarction [Unknown]
  - Coronary artery disease [Unknown]
  - Atrial fibrillation [Unknown]
  - Ventricular tachycardia [Unknown]
  - Bradycardia [Unknown]
  - Respiratory arrest [Unknown]
  - Cardiac disorder [Unknown]
